FAERS Safety Report 6860953-9 (Version None)
Quarter: 2010Q3

REPORT INFORMATION
  Report Type: 
  Country: None (occurrence: None)
  Receive Date: 20100715
  Receipt Date: 20100629
  Transmission Date: 20110219
  Serious: Yes (Other)
  Sender: FDA-Public Use
  Company Number: 1-19727427

PATIENT
  Sex: Female

DRUGS (2)
  1. FENTANYL-25 [Suspect]
     Indication: ARTHRITIS
     Dosage: TRANSDERMAL
     Route: 062
  2. BUPRENORPHINE [Suspect]
     Indication: ARTHRITIS

REACTIONS (4)
  - CIRCULATORY COLLAPSE [None]
  - DIZZINESS [None]
  - DRUG WITHDRAWAL SYNDROME [None]
  - HYPERHIDROSIS [None]
